FAERS Safety Report 4528605-8 (Version None)
Quarter: 2004Q4

REPORT INFORMATION
  Report Type: 
  Country: None (occurrence: None)
  Receive Date: 20041216
  Receipt Date: 20041213
  Transmission Date: 20050328
  Serious: Yes (Hospitalization)
  Sender: FDA-Public Use
  Company Number: PHHO2004JP17677

PATIENT
  Age: 86 Year
  Sex: Female

DRUGS (3)
  1. DIOVAN [Suspect]
     Dosage: 80 MG, QD
     Route: 048
     Dates: start: 20030620, end: 20040130
  2. AMLODIPINE [Suspect]
     Indication: HYPERTENSION
     Route: 048
  3. SELECTOL [Suspect]
     Indication: HYPERTENSION
     Dosage: UNK, UNK
     Dates: start: 19980812

REACTIONS (3)
  - DYSARTHRIA [None]
  - HEMIPLEGIA [None]
  - THALAMUS HAEMORRHAGE [None]
